FAERS Safety Report 4601939-4 (Version None)
Quarter: 2005Q1

REPORT INFORMATION
  Report Type: 
  Country: None (occurrence: None)
  Receive Date: 20050201
  Receipt Date: 20040212
  Transmission Date: 20050727
  Serious: Yes (Other)
  Sender: FDA-Public Use
  Company Number: 200412592BWH

PATIENT
  Sex: Female

DRUGS (3)
  1. AVELOX [Suspect]
     Indication: UPPER RESPIRATORY TRACT INFECTION
     Dosage: ORAL
     Route: 048
     Dates: start: 20040116
  2. AVELOX [Suspect]
     Indication: UPPER RESPIRATORY TRACT INFECTION
     Dosage: ORAL
     Route: 048
     Dates: start: 20040206
  3. AVELOX [Suspect]
     Indication: UPPER RESPIRATORY TRACT INFECTION
     Dosage: ORAL
     Route: 048
     Dates: start: 20040227

REACTIONS (5)
  - ANAPHYLACTIC REACTION [None]
  - EYE SWELLING [None]
  - OBSTRUCTIVE AIRWAYS DISORDER [None]
  - RASH GENERALISED [None]
  - SWELLING FACE [None]
